FAERS Safety Report 24039984 (Version 1)
Quarter: 2024Q3

REPORT INFORMATION
  Report Type: Spontaneous
  Country: GB (occurrence: GB)
  Receive Date: 20240702
  Receipt Date: 20240702
  Transmission Date: 20241017
  Serious: Yes (Hospitalization, Other)
  Sender: ACCORD
  Company Number: None

PATIENT
  Age: 36 Year
  Sex: Female

DRUGS (2)
  1. APIXABAN [Suspect]
     Active Substance: APIXABAN
     Indication: Deep vein thrombosis
     Dosage: 5MG 2X DAILY 12 HOURS APART
     Dates: start: 20240507, end: 20240621
  2. BETAHISTINE [Concomitant]
     Active Substance: BETAHISTINE
     Indication: Adverse drug reaction
     Dates: start: 20240520

REACTIONS (2)
  - Alanine aminotransferase increased [Not Recovered/Not Resolved]
  - Dizziness [Recovered/Resolved]

NARRATIVE: CASE EVENT DATE: 20240519
